FAERS Safety Report 9888682 (Version 2)
Quarter: 2014Q1

REPORT INFORMATION
  Report Type: Report from Study
  Country: US (occurrence: US)
  Receive Date: 20140211
  Receipt Date: 20140218
  Transmission Date: 20141002
  Serious: Yes (Other)
  Sender: FDA-Public Use
  Company Number: US-ACTELION-A-US2014-94498

PATIENT
  Age: 25 Year
  Sex: Female

DRUGS (3)
  1. TRACLEER [Suspect]
     Indication: PULMONARY ARTERIAL HYPERTENSION
     Dosage: 125 MG, BID
     Route: 048
     Dates: start: 20131011
  2. TRACLEER [Suspect]
     Dosage: UNK
     Route: 048
  3. TADALAFIL [Concomitant]

REACTIONS (4)
  - Pregnancy [Recovered/Resolved]
  - Abortion induced [Recovered/Resolved]
  - Treatment noncompliance [Recovered/Resolved]
  - Dyspnoea [Recovered/Resolved]
